FAERS Safety Report 11253294 (Version 1)
Quarter: 2015Q3

REPORT INFORMATION
  Report Type: Spontaneous
  Country: US (occurrence: US)
  Receive Date: 20150709
  Receipt Date: 20150709
  Transmission Date: 20151125
  Serious: No
  Sender: FDA-Public Use
  Company Number: US-TEVA-547179USA

PATIENT
  Sex: Female

DRUGS (3)
  1. CLONAZEPAM. [Suspect]
     Active Substance: CLONAZEPAM
     Indication: PANIC ATTACK
     Dosage: .1667 MILLIGRAM DAILY;
  2. VENLAFAXINE [Suspect]
     Active Substance: VENLAFAXINE HYDROCHLORIDE
     Indication: DEPRESSION
     Dosage: 75 AND 150 MG ONE DAILY
     Route: 048
     Dates: start: 20150303
  3. GABAPENTIN. [Suspect]
     Active Substance: GABAPENTIN
     Indication: NEURALGIA
     Dosage: 100 MILLIGRAM DAILY;
     Route: 048

REACTIONS (11)
  - Vision blurred [Unknown]
  - Tremor [Unknown]
  - Pharyngeal oedema [Unknown]
  - Muscle twitching [Unknown]
  - Muscle spasms [Unknown]
  - Hallucination [Unknown]
  - Throat tightness [Unknown]
  - Hypoaesthesia oral [Unknown]
  - Paraesthesia oral [Not Recovered/Not Resolved]
  - Headache [Unknown]
  - Asthenia [Unknown]
